FAERS Safety Report 16373747 (Version 2)
Quarter: 2019Q4

REPORT INFORMATION
  Report Type: Spontaneous
  Country: US (occurrence: US)
  Receive Date: 20190530
  Receipt Date: 20191004
  Transmission Date: 20200122
  Serious: No
  Sender: FDA-Public Use
  Company Number: US-SA-2019SA147274

PATIENT
  Age: 38 Year
  Sex: Female

DRUGS (3)
  1. PRALUENT [Suspect]
     Active Substance: ALIROCUMAB
     Indication: TYPE IIA HYPERLIPIDAEMIA
     Dosage: 150MG, QOW
     Route: 058
     Dates: start: 20190415
  2. PRALUENT [Suspect]
     Active Substance: ALIROCUMAB
     Dosage: 150 MG, QOW
     Route: 058
  3. CRESTOR [Concomitant]
     Active Substance: ROSUVASTATIN CALCIUM

REACTIONS (5)
  - Nausea [Unknown]
  - Cough [Unknown]
  - Rhinorrhoea [Unknown]
  - Influenza like illness [Unknown]
  - Pain [Unknown]
